FAERS Safety Report 17537451 (Version 3)
Quarter: 2020Q3

REPORT INFORMATION
  Report Type: Spontaneous
  Country: GB (occurrence: GB)
  Receive Date: 20200313
  Receipt Date: 20200918
  Transmission Date: 20201102
  Serious: Yes (Hospitalization)
  Sender: FDA-Public Use
  Company Number: GB-VERTEX PHARMACEUTICALS-2020-005074

PATIENT
  Sex: Female

DRUGS (10)
  1. SYMKEVI [Suspect]
     Active Substance: IVACAFTOR\TEZACAFTOR
     Indication: CYSTIC FIBROSIS
     Dosage: 1 DOSAGE FORM, QD IN MORNING
     Route: 048
     Dates: start: 202002, end: 202004
  2. SISOMICIN [Concomitant]
     Active Substance: SISOMICIN
  3. URSO [Concomitant]
     Active Substance: URSODIOL
  4. KALYDECO [Suspect]
     Active Substance: IVACAFTOR
     Indication: CYSTIC FIBROSIS
     Dosage: 150 MG IVACAFTOR IN EVENING
     Route: 048
     Dates: start: 202002, end: 202004
  5. PULMOZYME [Concomitant]
     Active Substance: DORNASE ALFA
  6. UNIFILIN [Concomitant]
  7. CREON [Concomitant]
     Active Substance: PANCRELIPASE AMYLASE\PANCRELIPASE LIPASE\PANCRELIPASE PROTEASE
  8. INSULIN [Concomitant]
     Active Substance: INSULIN NOS
  9. AMLODIPINE [Concomitant]
     Active Substance: AMLODIPINE BESYLATE
  10. AZTREONAM. [Concomitant]
     Active Substance: AZTREONAM

REACTIONS (1)
  - Kidney infection [Unknown]

NARRATIVE: CASE EVENT DATE: 2020
